FAERS Safety Report 7768477-1 (Version None)
Quarter: 2011Q3

REPORT INFORMATION
  Report Type: 
  Country: None (occurrence: None)
  Receive Date: 20110922
  Receipt Date: 20100412
  Transmission Date: 20111222
  Serious: No
  Sender: FDA-Public Use
  Company Number: US-ASTRAZENECA-2009UW18095

PATIENT
  Age: 60 Year
  Sex: Male

DRUGS (9)
  1. LIPITOR [Concomitant]
     Dates: start: 20041103
  2. LISINOPRIL [Concomitant]
     Dates: start: 20031022
  3. PROTONIX DELAY RELEASE [Concomitant]
     Dates: start: 20031001
  4. ALBUTEROL INH AERO [Concomitant]
     Dosage: 90 MCG/IN GM, INHALE 4 PUFFS EVERY 6 HOURS AS NEEDED.
     Dates: start: 20031022
  5. AZMACORT INH AERO [Concomitant]
     Dosage: 100 MCG/IN GM, INHALE 4 PUFFS TWICE A DAY
     Dates: start: 20031022
  6. DOXEPIN [Concomitant]
     Dates: start: 20041103
  7. NORVASC [Concomitant]
     Dates: start: 20031008
  8. SEROQUEL [Suspect]
     Dosage: 50-400 MG AT BEDTIME.
     Route: 048
     Dates: start: 20031001, end: 20041101
  9. RISPERDAL [Concomitant]
     Indication: MENTAL DISORDER

REACTIONS (3)
  - NIGHT SWEATS [None]
  - CHILLS [None]
  - TYPE 2 DIABETES MELLITUS [None]
